FAERS Safety Report 6129135-2 (Version None)
Quarter: 2009Q1

REPORT INFORMATION
  Report Type: 
  Country: None (occurrence: None)
  Receive Date: 20090320
  Receipt Date: 20090311
  Transmission Date: 20090719
  Serious: Yes (Death)
  Sender: FDA-Public Use
  Company Number: GXKR2009JP03174

PATIENT
  Age: 52 Year
  Sex: Male

DRUGS (16)
  1. CYCLOSPORINE [Suspect]
     Indication: PROPHYLAXIS AGAINST GRAFT VERSUS HOST DISEASE
     Dosage: 3 MG/KG, CONT (FROM DAY -1), INFUSION
  2. FLUDARABINE PHOSPHATE [Concomitant]
  3. MELPHALAN (MELPHALEN) [Concomitant]
  4. IRRADIATION (NO INGREDIENTS/SUBSTANCES) [Concomitant]
  5. ALLOPURINOL [Concomitant]
  6. CEFEPIME [Concomitant]
  7. ISEPAMICIN (ISEPAMICIN) [Concomitant]
  8. FUROSEMIDE [Concomitant]
  9. MEROPENEM (MEROPENEM) [Concomitant]
  10. MICAFUNGIN (MICAFUNGIN) [Concomitant]
  11. ALBUMIN NOS (ALBUMIN NOS) [Concomitant]
  12. SULFAMETHOXAZOLE W/TRIMETHOPRIM (SULFAMETHOXAZOLE, TRIMETHOPRIM) [Concomitant]
  13. FLUOROQUINOLONES (NO INGREDIENTS/SUBSTANCES) [Concomitant]
  14. FLUCONAZOLE [Concomitant]
  15. ACYCLOVIR [Concomitant]
  16. GRANULOCYTE COLONY STIMULATING FACTOR (GRANULOCYTE COLONY STIMULATING [Concomitant]

REACTIONS (7)
  - BLOOD PRESSURE DIASTOLIC DECREASED [None]
  - DRUG LEVEL INCREASED [None]
  - ENCEPHALOPATHY [None]
  - HAEMODIALYSIS [None]
  - HEPATIC FAILURE [None]
  - PYREXIA [None]
  - RENAL IMPAIRMENT [None]
